FAERS Safety Report 19802864 (Version 1)
Quarter: 2021Q3

REPORT INFORMATION
  Report Type: Spontaneous
  Country: US (occurrence: US)
  Receive Date: 20210903
  Receipt Date: 20210903
  Transmission Date: 20211014
  Serious: No
  Sender: FDA-Public Use
  Company Number: None

PATIENT
  Sex: Female

DRUGS (2)
  1. KISQALI [Suspect]
     Active Substance: RIBOCICLIB
     Indication: BREAST CANCER FEMALE
     Route: 048
     Dates: start: 20210327
  2. KISQALI [Suspect]
     Active Substance: RIBOCICLIB
     Indication: BONE CANCER
     Route: 048
     Dates: start: 20210327

REACTIONS (1)
  - Drug ineffective [None]
